FAERS Safety Report 6235023-3 (Version None)
Quarter: 2009Q2

REPORT INFORMATION
  Report Type: 
  Country: None (occurrence: None)
  Receive Date: 20090618
  Receipt Date: 20090609
  Transmission Date: 20091009
  Serious: Yes (Hospitalization, Other)
  Sender: FDA-Public Use
  Company Number: US-PURDUE-USA-2009-0038491

PATIENT
  Sex: Female

DRUGS (1)
  1. SENOKOT [Suspect]
     Indication: GASTROINTESTINAL DISORDER
     Dosage: 2 TABLET, DAILY
     Route: 048

REACTIONS (4)
  - HAEMATEMESIS [None]
  - MALIGNANT NEOPLASM PROGRESSION [None]
  - REGURGITATION [None]
  - URINE COLOUR ABNORMAL [None]
